FAERS Safety Report 13376749 (Version 1)
Quarter: 2017Q1

REPORT INFORMATION
  Report Type: Spontaneous
  Country: US (occurrence: US)
  Receive Date: 20170328
  Receipt Date: 20170328
  Transmission Date: 20170429
  Serious: Yes (Hospitalization)
  Sender: FDA-Public Use
  Company Number: US-ASTRAZENECA-2017SE31179

PATIENT
  Age: 921 Month
  Sex: Male
  Weight: 92.1 kg

DRUGS (8)
  1. BRILINTA [Suspect]
     Active Substance: TICAGRELOR
     Indication: STENT PLACEMENT
     Route: 048
     Dates: start: 20170320
  2. METFORMIN [Concomitant]
     Active Substance: METFORMIN HYDROCHLORIDE
     Indication: DIABETES MELLITUS
     Route: 048
     Dates: start: 201701
  3. AVODART [Concomitant]
     Active Substance: DUTASTERIDE
     Indication: PROSTATOMEGALY
     Dosage: DAILY
     Route: 048
     Dates: start: 2011
  4. SILDENAFIL. [Concomitant]
     Active Substance: SILDENAFIL
     Indication: ERECTILE DYSFUNCTION
     Dosage: 20.0MG AS REQUIRED
     Route: 048
     Dates: start: 201603
  5. HYZARAI [Concomitant]
     Indication: BLOOD PRESSURE ABNORMAL
     Dosage: DAILY
     Route: 048
     Dates: start: 201701
  6. TOPROL XL [Suspect]
     Active Substance: METOPROLOL SUCCINATE
     Dosage: DAILY
     Route: 048
     Dates: start: 201701
  7. LIPITOR [Concomitant]
     Active Substance: ATORVASTATIN CALCIUM
     Indication: BLOOD CHOLESTEROL INCREASED
     Route: 048
     Dates: start: 201701
  8. ASPIRIN. [Concomitant]
     Active Substance: ASPIRIN
     Route: 048
     Dates: start: 201702

REACTIONS (6)
  - Blood cholesterol increased [Unknown]
  - Circumstance or information capable of leading to medication error [Unknown]
  - Diabetes mellitus [Unknown]
  - Dysuria [Recovered/Resolved]
  - Coronary artery occlusion [Unknown]
  - Hypertension [Unknown]

NARRATIVE: CASE EVENT DATE: 201702
